FAERS Safety Report 6230346-6 (Version None)
Quarter: 2009Q2

REPORT INFORMATION
  Report Type: 
  Country: None (occurrence: None)
  Receive Date: 20090615
  Receipt Date: 20090610
  Transmission Date: 20091009
  Serious: Yes (Other)
  Sender: FDA-Public Use
  Company Number: US-AMGEN-US351079

PATIENT

DRUGS (1)
  1. NPLATE [Suspect]

REACTIONS (1)
  - ANTIBODY TEST [None]
